FAERS Safety Report 7639994-X (Version None)
Quarter: 2011Q3

REPORT INFORMATION
  Report Type: 
  Country: None (occurrence: None)
  Receive Date: 20110727
  Receipt Date: 20110721
  Transmission Date: 20111222
  Serious: Yes (Hospitalization)
  Sender: FDA-Public Use
  Company Number: DE-B.I. PHARMACEUTICALS,INC./RIDGEFIELD-2009-DE-04572DE

PATIENT
  Sex: Male
  Weight: 89 kg

DRUGS (5)
  1. PRADAXA [Suspect]
     Indication: THROMBOSIS PROPHYLAXIS
     Dosage: STRENGTH: 110
     Route: 048
     Dates: start: 20090616, end: 20090616
  2. NOVALGIN [Concomitant]
     Indication: ANALGESIC THERAPY
     Dosage: 4000 MG
     Route: 048
     Dates: start: 20090616, end: 20090622
  3. NOVAMINSULFON [Concomitant]
     Indication: ANALGESIC THERAPY
     Dosage: 25 GTT ONCE DAILY
     Route: 048
     Dates: start: 20090620, end: 20090621
  4. PRADAXA [Suspect]
     Indication: KNEE ARTHROPLASTY
     Dosage: STRENGTH: 110
     Route: 048
     Dates: start: 20090617, end: 20090628
  5. EZETIMIBE [Concomitant]
     Indication: HYPERCHOLESTEROLAEMIA
     Dosage: 5 MG
     Route: 048

REACTIONS (6)
  - DYSPNOEA [None]
  - RESTLESSNESS [None]
  - RASH [None]
  - DERMATITIS ALLERGIC [None]
  - HYPERSENSITIVITY [None]
  - HYPERHIDROSIS [None]
